FAERS Safety Report 19814686 (Version 2)
Quarter: 2021Q4

REPORT INFORMATION
  Report Type: Report from Study
  Country: US (occurrence: US)
  Receive Date: 20210909
  Receipt Date: 20211130
  Transmission Date: 20220303
  Serious: Yes (Hospitalization)
  Sender: FDA-Public Use
  Company Number: US-BOEHRINGERINGELHEIM-2021-BI-125928

PATIENT
  Age: 75 Year
  Sex: Male

DRUGS (2)
  1. OFEV [Suspect]
     Active Substance: NINTEDANIB
     Indication: Idiopathic pulmonary fibrosis
     Dosage: 150MG DAILY BY MOUTH.
     Route: 048
     Dates: start: 20210601
  2. OFEV [Suspect]
     Active Substance: NINTEDANIB
     Dosage: 150MG BID
     Route: 048
     Dates: start: 20210628, end: 2021

REACTIONS (1)
  - Diverticulitis intestinal haemorrhagic [Recovered/Resolved]
